FAERS Safety Report 17929263 (Version 1)
Quarter: 2020Q2

REPORT INFORMATION
  Report Type: Spontaneous
  Country: CA (occurrence: CA)
  Receive Date: 20200623
  Receipt Date: 20200623
  Transmission Date: 20200714
  Serious: Yes (Hospitalization)
  Sender: FDA-Public Use
  Company Number: CA-TEVA-2020-CA-1791222

PATIENT
  Age: 53 Year
  Sex: Male

DRUGS (4)
  1. TEVA-ATAZANAVIR [Suspect]
     Active Substance: ATAZANAVIR
     Indication: ANTIRETROVIRAL THERAPY
  2. MYLAN-EMTRICITABINE/TENOFOVIR DISOPROXIL [Concomitant]
     Active Substance: EMTRICITABINE\TENOFOVIR DISOPROXIL
  3. TEVA-ATAZANAVIR [Suspect]
     Active Substance: ATAZANAVIR
     Indication: HIV INFECTION
     Dosage: 1 DOSAGE FORMS DAILY;
  4. RITONAVIR. [Concomitant]
     Active Substance: RITONAVIR

REACTIONS (3)
  - Cholelithiasis [Unknown]
  - Gamma-glutamyltransferase abnormal [Unknown]
  - Pancreatitis [Unknown]
